FAERS Safety Report 15578008 (Version 1)
Quarter: 2018Q4

REPORT INFORMATION
  Report Type: Spontaneous
  Country: IT (occurrence: IT)
  Receive Date: 20181102
  Receipt Date: 20181102
  Transmission Date: 20190205
  Serious: Yes (Hospitalization, Other)
  Sender: FDA-Public Use
  Company Number: PHHY2018IT141005

PATIENT
  Age: 64 Year
  Sex: Male

DRUGS (1)
  1. ZOLPIDEM [Suspect]
     Active Substance: ZOLPIDEM\ZOLPIDEM TARTRATE
     Indication: INSOMNIA
     Dosage: 240 MG, QD
     Route: 065

REACTIONS (6)
  - Dystonic tremor [Unknown]
  - Movement disorder [Unknown]
  - Toxicity to various agents [Unknown]
  - Dyskinesia [Recovering/Resolving]
  - Myoclonus [Unknown]
  - Drug abuse [Unknown]
